FAERS Safety Report 9254707 (Version 1)
Quarter: 2013Q2

REPORT INFORMATION
  Report Type: Spontaneous
  Country: FR (occurrence: FR)
  Receive Date: 20130425
  Receipt Date: 20130425
  Transmission Date: 20140414
  Serious: Yes (Disabling, Other)
  Sender: FDA-Public Use
  Company Number: FR-ROCHE-1199984

PATIENT
  Age: 64 Year
  Sex: Female
  Weight: 50 kg

DRUGS (5)
  1. ZELBORAF [Suspect]
     Indication: METASTATIC MALIGNANT MELANOMA
     Route: 048
     Dates: start: 201205, end: 201211
  2. ZELBORAF [Suspect]
     Dosage: 4 TABLETS IN THE MORNING AND EVENING
     Route: 065
     Dates: start: 201301
  3. TEMODAL [Concomitant]
     Indication: MALIGNANT MELANOMA
     Route: 048
     Dates: start: 201301
  4. HYDROCORTISONE [Concomitant]
     Indication: MALIGNANT MELANOMA
     Route: 048
     Dates: start: 201301
  5. HYDROCORTISONE [Concomitant]
     Dosage: 2 TABLETS IN THE MORNING
     Route: 065
     Dates: start: 20130304

REACTIONS (3)
  - Onychalgia [Not Recovered/Not Resolved]
  - Hemiplegia [Not Recovered/Not Resolved]
  - Nail discolouration [Not Recovered/Not Resolved]
